FAERS Safety Report 16736973 (Version 2)
Quarter: 2019Q4

REPORT INFORMATION
  Report Type: Spontaneous
  Country: US (occurrence: US)
  Receive Date: 20190823
  Receipt Date: 20191014
  Transmission Date: 20200122
  Serious: No
  Sender: FDA-Public Use
  Company Number: US-JNJFOC-20190823400

PATIENT
  Age: 24 Year
  Sex: Female

DRUGS (1)
  1. TREMFYA [Suspect]
     Active Substance: GUSELKUMAB
     Indication: PSORIASIS
     Route: 058
     Dates: start: 20190808

REACTIONS (10)
  - Abdominal pain [Recovered/Resolved]
  - Depression [Recovered/Resolved]
  - Anxiety [Recovering/Resolving]
  - Product use issue [Unknown]
  - Dysuria [Recovered/Resolved]
  - Restlessness [Recovered/Resolved]
  - Decreased appetite [Recovered/Resolved]
  - Off label use [Unknown]
  - Insomnia [Recovered/Resolved]
  - Tremor [Recovered/Resolved]

NARRATIVE: CASE EVENT DATE: 2019
